FAERS Safety Report 4993946-7 (Version None)
Quarter: 2006Q2

REPORT INFORMATION
  Report Type: 
  Country: None (occurrence: None)
  Receive Date: 20060505
  Receipt Date: 20060503
  Transmission Date: 20061013
  Serious: Yes (Hospitalization)
  Sender: FDA-Public Use
  Company Number: US-GLAXOSMITHKLINE-A0604208A

PATIENT
  Age: 49 Year
  Sex: Female

DRUGS (2)
  1. WELLBUTRIN XL [Suspect]
     Indication: DEPRESSION
     Dosage: 600MG PER DAY
     Route: 048
     Dates: start: 20060101, end: 20060329
  2. METOPROLOL SUCCINATE [Concomitant]

REACTIONS (4)
  - EYELID FUNCTION DISORDER [None]
  - HALLUCINATION, AUDITORY [None]
  - LOGORRHOEA [None]
  - OVERDOSE [None]
